FAERS Safety Report 15592054 (Version 1)
Quarter: 2018Q4

REPORT INFORMATION
  Report Type: Spontaneous
  Country: US (occurrence: US)
  Receive Date: 20181106
  Receipt Date: 20181106
  Transmission Date: 20190205
  Serious: No
  Sender: FDA-Public Use
  Company Number: US-MIST-TIR-2018-0610

PATIENT
  Age: 56 Year
  Sex: Female
  Weight: 61.74 kg

DRUGS (9)
  1. TIROSINT [Suspect]
     Active Substance: LEVOTHYROXINE SODIUM
     Indication: THYROIDECTOMY
     Dosage: 112MCG DAILY SIX DAYS PER WEEK AND 100MCG DAILY (TAKING TWO 50MCG CAPSULES) ONE DAY PER WEEK
     Route: 048
     Dates: start: 2017, end: 201803
  2. TIROSINT [Suspect]
     Active Substance: LEVOTHYROXINE SODIUM
     Dosage: 112MCG DAILY FIVE DAYS PER WEEK AND 100MCG DAILY TWO DAYS PER WEEK
     Route: 048
     Dates: start: 201803, end: 201806
  3. TIROSINT [Suspect]
     Active Substance: LEVOTHYROXINE SODIUM
     Indication: THYROIDECTOMY
     Dosage: 112MCG DAILY
     Route: 048
     Dates: end: 2017
  4. TIROSINT [Suspect]
     Active Substance: LEVOTHYROXINE SODIUM
     Dosage: 112MCG DAILY SIX DAYS PER WEEK AND 100MCG DAILY ONE DAY PER WEEK
     Route: 048
     Dates: start: 2017, end: 201803
  5. TIROSINT [Suspect]
     Active Substance: LEVOTHYROXINE SODIUM
     Indication: THYROIDECTOMY
     Dosage: 112MCG EVERY OTHER DAY AND 100MCG EVERY OTHER DAY
     Route: 048
     Dates: start: 20180609
  6. SINGULAIR [Concomitant]
     Active Substance: MONTELUKAST SODIUM
     Indication: PRODUCT USED FOR UNKNOWN INDICATION
  7. IMMUNOGLOBULIN NOS [Concomitant]
     Active Substance: IMMUNE GLOBULIN NOS
     Indication: PRODUCT USED FOR UNKNOWN INDICATION
     Route: 042
  8. TIROSINT [Suspect]
     Active Substance: LEVOTHYROXINE SODIUM
     Dosage: 112MCG EVERY OTHER DAY AND 100MCG EVERY OTHER DAY
     Route: 048
     Dates: start: 201806
  9. TIROSINT [Suspect]
     Active Substance: LEVOTHYROXINE SODIUM
     Dosage: 112MCG DAILY FIVE DAYS PER WEEK AND 100MCG (TAKING TWO 50MCG CAPSULES) 2 DAYS PER WEEK
     Route: 048
     Dates: start: 201803

REACTIONS (4)
  - Tachycardia [Recovering/Resolving]
  - Flushing [Recovered/Resolved]
  - Drug level above therapeutic [Unknown]
  - Thyroid function test abnormal [Unknown]

NARRATIVE: CASE EVENT DATE: 2017
